FAERS Safety Report 13655941 (Version 1)
Quarter: 2017Q2

REPORT INFORMATION
  Report Type: Spontaneous
  Country: GB (occurrence: GB)
  Receive Date: 20170615
  Receipt Date: 20170615
  Transmission Date: 20170830
  Serious: Yes (Other)
  Sender: FDA-Public Use
  Company Number: GB-PFIZER INC-2017257326

PATIENT
  Age: 30 Year
  Sex: Female
  Weight: 60.77 kg

DRUGS (4)
  1. DOXYCYCLINE HYCLATE. [Suspect]
     Active Substance: DOXYCYCLINE HYCLATE
     Indication: INFECTION
     Dosage: 100 MG, 2X/DAY
     Route: 048
     Dates: start: 20170523, end: 20170527
  2. GEDAREL [Concomitant]
     Dosage: UNK
  3. METRONIDAZOLE. [Suspect]
     Active Substance: METRONIDAZOLE
     Indication: INFECTION
     Dosage: 400 MG, 2X/DAY
     Route: 048
     Dates: start: 20170523, end: 20170527
  4. LYMECYCLINE [Concomitant]
     Active Substance: LYMECYCLINE

REACTIONS (7)
  - Suicidal ideation [Recovered/Resolved]
  - Depressed mood [Not Recovered/Not Resolved]
  - Depression [Not Recovered/Not Resolved]
  - Dermatitis allergic [Recovering/Resolving]
  - Personality change [Unknown]
  - Apathy [Not Recovered/Not Resolved]
  - Dissociation [Not Recovered/Not Resolved]

NARRATIVE: CASE EVENT DATE: 20170524
